FAERS Safety Report 5965072-1 (Version None)
Quarter: 2008Q4

REPORT INFORMATION
  Report Type: 
  Country: None (occurrence: None)
  Receive Date: 20081124
  Receipt Date: 20081124
  Transmission Date: 20090506
  Serious: No
  Sender: FDA-Public Use
  Company Number: None

PATIENT
  Sex: Male

DRUGS (2)
  1. AMOXICILLIN [Suspect]
     Indication: EAR INFECTION
     Dosage: PO
     Route: 048
  2. AMOXICILLIN [Suspect]
     Indication: RESPIRATORY DISORDER
     Dosage: PO
     Route: 048

REACTIONS (2)
  - DEFORMITY [None]
  - TOOTH DISORDER [None]
